FAERS Safety Report 4314023-4 (Version None)
Quarter: 2004Q1

REPORT INFORMATION
  Report Type: 
  Country: None (occurrence: None)
  Receive Date: 20040305
  Receipt Date: 20040224
  Transmission Date: 20041129
  Serious: Yes (Life-Threatening)
  Sender: FDA-Public Use
  Company Number: OMPQ-NO-0402S-0125

PATIENT
  Age: 75 Year
  Sex: Male
  Weight: 52 kg

DRUGS (10)
  1. OMNIPAQUE 70 [Suspect]
     Indication: DRUG USE FOR UNKNOWN INDICATION
     Dosage: 200 ML, SINGLE DOSE, I.A.
     Route: 013
     Dates: start: 20040205, end: 20040205
  2. ACETYLSALICYLIC ACID (BAYASPIRIN) [Concomitant]
  3. TAMSULOSIN HYDROCHLORIDE (HARNAL) [Concomitant]
  4. DIOVAN [Concomitant]
  5. LIPITOR [Concomitant]
  6. METOPROLOL TARTRATE (SELOKEN) [Concomitant]
  7. CILOSTAZOL (ECBARL) [Concomitant]
  8. LANSOPRAZOLE [Concomitant]
  9. HEPARIN-FRACTION SODIUM SALT (LOWMORIN) [Concomitant]
  10. WARFARIN SODIUM [Concomitant]

REACTIONS (8)
  - BLOOD PRESSURE DECREASED [None]
  - CARDIAC PROCEDURE COMPLICATION [None]
  - CHILLS [None]
  - HAEMATURIA [None]
  - HAEMORRHAGE [None]
  - HAEMORRHAGE SUBCUTANEOUS [None]
  - LACRIMAL DISORDER [None]
  - THROMBOCYTOPENIA [None]
